FAERS Safety Report 8956047 (Version 2)
Quarter: 2012Q4

REPORT INFORMATION
  Report Type: Report from Study
  Country: DE (occurrence: DE)
  Receive Date: 20121210
  Receipt Date: 20121219
  Transmission Date: 20130627
  Serious: Yes (Death, Other)
  Sender: FDA-Public Use
  Company Number: DE-CELGENEUS-062-21660-12113927

PATIENT
  Age: 45 Year
  Sex: Female

DRUGS (1)
  1. ABRAXANE [Suspect]
     Indication: BREAST CANCER METASTATIC
     Dosage: 150mg/m2 / 120mg/m2
     Route: 065
     Dates: start: 20110811, end: 20110923

REACTIONS (4)
  - Breast cancer metastatic [Fatal]
  - Polyneuropathy [Unknown]
  - Neutropenia [Unknown]
  - Rash [Unknown]
